FAERS Safety Report 8953623 (Version 1)
Quarter: 2012Q4

REPORT INFORMATION
  Report Type: 
  Country: CA (occurrence: CA)
  Receive Date: 20121206
  Receipt Date: 20121206
  Transmission Date: 20130627
  Serious: Yes (Hospitalization, Other)
  Sender: FDA-Public Use
  Company Number: CA-ROCHE-1165302

PATIENT
  Age: 48 Year
  Sex: Female
  Weight: 45.05 kg

DRUGS (1)
  1. OMALIZUMAB [Suspect]
     Indication: ASTHMA
     Route: 065
     Dates: start: 20061017, end: 20070402

REACTIONS (14)
  - Bronchitis [Unknown]
  - Pseudomonas infection [Unknown]
  - Pulmonary congestion [Unknown]
  - Cough [Unknown]
  - Vomiting [Unknown]
  - Bronchopulmonary aspergillosis [Unknown]
  - Secretion discharge [Unknown]
  - Dyspnoea [Unknown]
  - Bronchiectasis [Unknown]
  - Chest pain [Unknown]
  - Chest discomfort [Unknown]
  - Muscle spasms [Unknown]
  - Drug ineffective [Unknown]
  - Productive cough [Unknown]
